FAERS Safety Report 8832920 (Version 1)
Quarter: 2012Q4

REPORT INFORMATION
  Report Type: 
  Country: ES (occurrence: ES)
  Receive Date: 20121010
  Receipt Date: 20121010
  Transmission Date: 20130627
  Serious: Yes (Other)
  Sender: FDA-Public Use
  Company Number: ES-TEVA-361189ISR

PATIENT
  Sex: Female

DRUGS (1)
  1. DORZOLAMIDA TIMOLOL TEVA [Suspect]
     Indication: GLAUCOMA
     Route: 047
     Dates: start: 201209, end: 201209

REACTIONS (1)
  - Blindness [Recovered/Resolved]
